FAERS Safety Report 7388141-0 (Version None)
Quarter: 2011Q2

REPORT INFORMATION
  Report Type: 
  Country: None (occurrence: None)
  Receive Date: 20110401
  Receipt Date: 20091122
  Transmission Date: 20111010
  Serious: Yes (Hospitalization, Other)
  Sender: FDA-Public Use
  Company Number: US-BAYER-2011-005756

PATIENT
  Sex: Male
  Weight: 86.168 kg

DRUGS (10)
  1. TRASYLOL,TRASYLOL [Suspect]
     Dosage: 50 ML, HS
     Route: 042
     Dates: start: 20020220, end: 20020220
  2. EPINEPHRINE [Concomitant]
     Dosage: 8/500 ML TITRATED
     Route: 042
     Dates: start: 20020220, end: 20020220
  3. ALLEGRA [Concomitant]
     Dosage: 60 MG, BID
     Route: 048
     Dates: start: 20020219, end: 20020220
  4. LASIX + K [Concomitant]
     Dosage: 20-40 MG ONE TIME
     Route: 042
     Dates: start: 20020218, end: 20020218
  5. PROCARDIA [Concomitant]
     Dosage: 60 MG, QD
     Route: 048
     Dates: start: 20020218, end: 20020220
  6. PROTAMINE SULFATE [Concomitant]
     Dosage: 450 MG, UNK
     Dates: start: 20020220, end: 20020220
  7. VALIUM NOVUM [Concomitant]
     Dosage: 5 MG, UNK
     Route: 048
     Dates: start: 20020206, end: 20020206
  8. TRASYLOL,TRASYLOL [Suspect]
     Indication: CORONARY ARTERY BYPASS
     Dosage: 200 ML, ONCE
     Route: 042
     Dates: start: 20020220
  9. MICRO-K [Suspect]
     Dosage: 20 MEQ, UNK
     Route: 048
     Dates: start: 20020208, end: 20020208
  10. HEPARIN SODIUM [Concomitant]
     Dosage: 35000 U, UNK
     Route: 042
     Dates: start: 20020220, end: 20020220

REACTIONS (9)
  - RENAL FAILURE [None]
  - EMOTIONAL DISTRESS [None]
  - FEAR [None]
  - STRESS [None]
  - PAIN [None]
  - ANXIETY [None]
  - RENAL IMPAIRMENT [None]
  - RENAL INJURY [None]
  - UNEVALUABLE EVENT [None]
